FAERS Safety Report 7451545-1 (Version None)
Quarter: 2011Q2

REPORT INFORMATION
  Report Type: 
  Country: None (occurrence: None)
  Receive Date: 20110502
  Receipt Date: 20100423
  Transmission Date: 20111010
  Serious: No
  Sender: FDA-Public Use
  Company Number: US-ASTRAZENECA-2009UW18898

PATIENT
  Age: 65 Year
  Sex: Female

DRUGS (7)
  1. NEXIUM [Suspect]
     Route: 048
  2. PRILOSEC [Suspect]
     Route: 048
  3. NEXIUM [Suspect]
     Indication: NAUSEA
     Route: 048
  4. NEXIUM [Suspect]
     Indication: GASTROOESOPHAGEAL REFLUX DISEASE
     Route: 048
  5. NEXIUM [Suspect]
     Route: 048
  6. CLONAZEPAM [Concomitant]
     Indication: ANXIETY
  7. MYLANTA [Concomitant]

REACTIONS (6)
  - OSTEOPOROSIS [None]
  - IRRITABLE BOWEL SYNDROME [None]
  - DRY MOUTH [None]
  - DRUG INEFFECTIVE [None]
  - ABDOMINAL DISCOMFORT [None]
  - NAUSEA [None]
